FAERS Safety Report 4308351-6 (Version None)
Quarter: 2004Q1

REPORT INFORMATION
  Report Type: 
  Country: None (occurrence: None)
  Receive Date: 20040301
  Receipt Date: 20040220
  Transmission Date: 20041129
  Serious: Yes (Hospitalization, Other)
  Sender: FDA-Public Use
  Company Number: PHRM2004FR00947

PATIENT
  Age: 36 Year
  Sex: Female
  Weight: 50 kg

DRUGS (2)
  1. LAMISIL [Suspect]
     Indication: SKIN LESION
     Dosage: 250 MG, BID
     Route: 048
     Dates: start: 20031028, end: 20031103
  2. LAMISIL [Concomitant]
     Route: 061
     Dates: start: 20031028, end: 20031103

REACTIONS (16)
  - ALANINE AMINOTRANSFERASE INCREASED [None]
  - ASPARTATE AMINOTRANSFERASE INCREASED [None]
  - ASTHENIA [None]
  - BLOOD ALKALINE PHOSPHATASE INCREASED [None]
  - BLOOD BILIRUBIN INCREASED [None]
  - C-REACTIVE PROTEIN INCREASED [None]
  - CYTOLYTIC HEPATITIS [None]
  - GAMMA-GLUTAMYLTRANSFERASE INCREASED [None]
  - HEADACHE [None]
  - HEPATITIS CHOLESTATIC [None]
  - HYPERGLYCAEMIA [None]
  - JAUNDICE [None]
  - LYMPHOPENIA [None]
  - NAUSEA [None]
  - OVERDOSE [None]
  - RASH PRURITIC [None]
